FAERS Safety Report 4945219-6 (Version None)
Quarter: 2006Q1

REPORT INFORMATION
  Report Type: 
  Country: None (occurrence: None)
  Receive Date: 20060117
  Receipt Date: 20051018
  Transmission Date: 20060701
  Serious: Yes (Other)
  Sender: FDA-Public Use
  Company Number: A03200503326

PATIENT
  Age: 77 Year
  Sex: Male
  Weight: 95.2554 kg

DRUGS (1)
  1. PLAVIX [Suspect]
     Indication: ARTERIAL DISORDER
     Dosage: 75 MG QD - ORAL
     Route: 048

REACTIONS (2)
  - CORONARY ARTERY THROMBOSIS [None]
  - THROMBOSIS [None]
